FAERS Safety Report 24226138 (Version 1)
Quarter: 2024Q3

REPORT INFORMATION
  Report Type: Report from Study
  Country: US (occurrence: None)
  Receive Date: 20240820
  Receipt Date: 20240820
  Transmission Date: 20241017
  Serious: Yes (Other)
  Sender: ASTRAZENECA
  Company Number: 2022A417191

PATIENT
  Sex: Female

DRUGS (1)
  1. FASENRA [Suspect]
     Active Substance: BENRALIZUMAB
     Indication: Asthma
     Dosage: INJECT 1 PEN UNDER THE SKIN (SUBCUTANEOUS INJECTION) EVERY 8 WEEKS30.0MG/ML UNKNOWN
     Route: 058
     Dates: start: 20220913

REACTIONS (2)
  - Blood iron decreased [Not Recovered/Not Resolved]
  - Off label use [Not Recovered/Not Resolved]
